FAERS Safety Report 6420047-3 (Version None)
Quarter: 2009Q4

REPORT INFORMATION
  Report Type: 
  Country: None (occurrence: None)
  Receive Date: 20091029
  Receipt Date: 20091019
  Transmission Date: 20100525
  Serious: Yes (Other)
  Sender: FDA-Public Use
  Company Number: GB-BAUSCH-2009BL004833

PATIENT
  Age: 8 Month
  Weight: 2 kg

DRUGS (3)
  1. DEXAMETHASONE [Suspect]
     Indication: ADRENAL DISORDER
     Route: 064
  2. ARIPIPRAZOLE [Suspect]
     Indication: BIPOLAR DISORDER
     Route: 064
  3. DEXTROAMPHETAMINE SULFATE [Suspect]
     Indication: DRUG USE FOR UNKNOWN INDICATION
     Route: 064
     Dates: start: 20080101, end: 20080101

REACTIONS (6)
  - CONGENITAL ANOMALY [None]
  - GROSS MOTOR DELAY [None]
  - HEAD DEFORMITY [None]
  - MATERNAL DRUGS AFFECTING FOETUS [None]
  - PLAGIOCEPHALY [None]
  - SMALL FOR DATES BABY [None]
